FAERS Safety Report 7804974-8 (Version None)
Quarter: 2011Q4

REPORT INFORMATION
  Report Type: 
  Country: None (occurrence: None)
  Receive Date: 20111010
  Receipt Date: 20110927
  Transmission Date: 20120403
  Serious: Yes (Hospitalization)
  Sender: FDA-Public Use
  Company Number: US-JNJFOC-20110100841

PATIENT
  Sex: Male
  Weight: 89 kg

DRUGS (12)
  1. TESTOSTERONE [Suspect]
     Indication: PRODUCT USED FOR UNKNOWN INDICATION
  2. BOTOX [Concomitant]
     Indication: SKIN LESION
  3. CREATINE [Concomitant]
  4. VITAMIN B-12 [Concomitant]
  5. EXTRA STRENGTH TYLENOL [Suspect]
     Indication: EAR PAIN
     Dosage: INGESTED 40 PILLS IN 2 DAYS 1500MG-2000MG EVERY 3 HOURS
     Route: 048
     Dates: start: 20080401, end: 20080509
  6. SUDAFED 12 HOUR [Concomitant]
     Indication: HEADACHE
  7. GLUTAMINE [Concomitant]
  8. VITAMIN TAB [Concomitant]
  9. SUDAFED 12 HOUR [Concomitant]
     Indication: EAR PAIN
  10. EXTRA STRENGTH TYLENOL [Suspect]
     Indication: HEADACHE
     Dosage: INGESTED 40 PILLS IN 2 DAYS 1500MG-2000MG EVERY 3 HOURS
     Route: 048
     Dates: start: 20080401, end: 20080509
  11. IBUPROFEN (ADVIL) [Concomitant]
     Indication: HEADACHE
  12. PRASTERONE [Suspect]
     Indication: PRODUCT USED FOR UNKNOWN INDICATION

REACTIONS (5)
  - ACUTE HEPATIC FAILURE [None]
  - RHABDOMYOLYSIS [None]
  - ACCIDENTAL OVERDOSE [None]
  - HEPATIC ENCEPHALOPATHY [None]
  - RENAL FAILURE ACUTE [None]
